FAERS Safety Report 9660527 (Version 1)
Quarter: 2013Q4

REPORT INFORMATION
  Report Type: Spontaneous
  Country: US (occurrence: US)
  Receive Date: 20131031
  Receipt Date: 20131031
  Transmission Date: 20140711
  Serious: Yes (Other)
  Sender: FDA-Public Use
  Company Number: US-BAYER-2013-131457

PATIENT
  Age: 43 Year
  Sex: Female

DRUGS (2)
  1. YASMIN [Suspect]
     Route: 048
  2. BEYAZ [Suspect]
     Route: 048

REACTIONS (1)
  - Deep vein thrombosis [None]
